FAERS Safety Report 13452124 (Version 1)
Quarter: 2017Q2

REPORT INFORMATION
  Report Type: Spontaneous
  Country: US (occurrence: US)
  Receive Date: 20170418
  Receipt Date: 20170418
  Transmission Date: 20170830
  Serious: Yes (Other)
  Sender: FDA-Public Use
  Company Number: US-ELI_LILLY_AND_COMPANY-US201704003704

PATIENT
  Sex: Male

DRUGS (3)
  1. ALIMTA [Suspect]
     Active Substance: PEMETREXED DISODIUM
     Indication: NON-SMALL CELL LUNG CANCER STAGE II
     Dosage: UNK UNK, UNKNOWN
     Route: 065
     Dates: start: 2015, end: 201609
  2. OPDIVO [Suspect]
     Active Substance: NIVOLUMAB
     Indication: PRODUCT USED FOR UNKNOWN INDICATION
     Dosage: UNK, UNKNOWN
     Route: 065
     Dates: start: 201610
  3. AVASTIN [Suspect]
     Active Substance: BEVACIZUMAB
     Indication: PRODUCT USED FOR UNKNOWN INDICATION
     Dosage: UNK, UNKNOWN
     Route: 065

REACTIONS (9)
  - Genital haemorrhage [Unknown]
  - Rectal haemorrhage [Unknown]
  - Weight decreased [Unknown]
  - Pancreatic disorder [Unknown]
  - Diabetes mellitus [Unknown]
  - Irritable bowel syndrome [Unknown]
  - Proctitis [Unknown]
  - Colitis [Unknown]
  - Epistaxis [Unknown]
